FAERS Safety Report 6250643-8 (Version None)
Quarter: 2009Q2

REPORT INFORMATION
  Report Type: 
  Country: None (occurrence: None)
  Receive Date: 20090630
  Receipt Date: 20090618
  Transmission Date: 20091009
  Serious: Yes (Other)
  Sender: FDA-Public Use
  Company Number: US-PFIZER INC-2009168397

PATIENT
  Sex: Female
  Weight: 82 kg

DRUGS (6)
  1. DEPO-PROVERA [Suspect]
     Indication: CONTRACEPTION
     Dosage: MONTHLY
  2. LITHIUM [Suspect]
     Indication: BIPOLAR I DISORDER
     Dosage: UNK
  3. DEPAKOTE [Suspect]
     Indication: BIPOLAR I DISORDER
     Dosage: UNK
  4. HALDOL [Suspect]
     Indication: BIPOLAR I DISORDER
     Dosage: UNK
  5. ZYPREXA [Suspect]
     Indication: BIPOLAR I DISORDER
     Dosage: UNK
  6. LEVOXYL [Suspect]
     Dosage: UNK

REACTIONS (10)
  - BLOOD URINE PRESENT [None]
  - CARDIAC DISORDER [None]
  - DYSPNOEA [None]
  - GAIT DISTURBANCE [None]
  - HAEMATOCHEZIA [None]
  - MALAISE [None]
  - METRORRHAGIA [None]
  - PERIPHERAL VASCULAR DISORDER [None]
  - VOMITING [None]
  - WEIGHT INCREASED [None]
